FAERS Safety Report 26183338 (Version 1)
Quarter: 2025Q4

REPORT INFORMATION
  Report Type: Report from Study
  Country: US (occurrence: US)
  Receive Date: 20251221
  Receipt Date: 20251221
  Transmission Date: 20260118
  Serious: Yes (Other)
  Sender: ROCHE
  Company Number: US-ROCHE-2786724

PATIENT
  Age: 28 Year
  Sex: Male

DRUGS (2)
  1. COTELLIC [Suspect]
     Active Substance: COBIMETINIB FUMARATE
     Indication: Langerhans^ cell histiocytosis
     Dosage: 60 MG DAILY FOR 21 DAYS ON, FOLLOWED BY 7-DAY REST PERIOD?TAKE 3 TABLETS BY MOUTH DAILY FOR 21 DAYS THEN 7 DAYS OFF, REPEAT 28 DAY CYCLE
     Route: 048
  2. CLADRIBINE [Concomitant]
     Active Substance: CLADRIBINE

REACTIONS (2)
  - Off label use [Unknown]
  - Diabetes mellitus [Unknown]
